FAERS Safety Report 21844708 (Version 1)
Quarter: 2023Q1

REPORT INFORMATION
  Report Type: Spontaneous
  Country: US (occurrence: None)
  Receive Date: 20230110
  Receipt Date: 20230110
  Transmission Date: 20230418
  Serious: Yes (Other)
  Sender: FDA-Public Use
  Company Number: None

PATIENT
  Age: 51 Year
  Sex: Female
  Weight: 49.5 kg

DRUGS (1)
  1. LORAZEPAM [Suspect]
     Active Substance: LORAZEPAM
     Indication: Anxiety
     Dosage: OTHER QUANTITY : 90 TABLET(S);?FREQUENCY : EVERY 8 HOURS;?
     Route: 048

REACTIONS (4)
  - Anxiety [None]
  - Suspected product quality issue [None]
  - Visual impairment [None]
  - Paradoxical drug reaction [None]

NARRATIVE: CASE EVENT DATE: 20221101
